FAERS Safety Report 8007708-X (Version None)
Quarter: 2011Q4

REPORT INFORMATION
  Report Type: 
  Country: None (occurrence: None)
  Receive Date: 20111222
  Receipt Date: 20111115
  Transmission Date: 20120403
  Serious: Yes (Other)
  Sender: FDA-Public Use
  Company Number: 2011PROUSA00792

PATIENT
  Age: 75 Year
  Sex: Male
  Weight: 88.2 kg

DRUGS (12)
  1. HEPARIN [Suspect]
     Indication: INDWELLING CATHETER MANAGEMENT
  2. CALCIUM CARBONATE [Concomitant]
  3. PROVENGE [Suspect]
     Indication: PROSTATE CANCER METASTATIC
     Dosage: 250 ML, SINGLE, INTRAVENOUS
     Route: 042
     Dates: start: 20111031, end: 20111031
  4. LUPRON DEPOT [Concomitant]
  5. CHOLECALCIFEROL (COLECALCIFEROL) [Concomitant]
  6. LISINOPRIL [Concomitant]
  7. GLUCOSAMINE CHONDROITIN /01430901/ (CHONDROITIN SULFATE, GLUCOSAMINE S [Concomitant]
  8. HYDROCHLOROTHIAZIDE [Concomitant]
  9. ALENDRONATE SODIUM [Concomitant]
  10. ASPIRIN [Concomitant]
  11. CENTRUM SILVER /01292501/ (ASCORBIC ACID, CALCIUM, MINERALS NOS, RETIN [Concomitant]
  12. PROVENGE [Suspect]
     Indication: PROSTATE CANCER METASTATIC
     Dosage: 250 ML, SINGLE, INTRAVENOUS
     Route: 042
     Dates: start: 20111114, end: 20111114

REACTIONS (2)
  - PLATELET COUNT DECREASED [None]
  - HAEMATURIA [None]
